FAERS Safety Report 17112320 (Version 1)
Quarter: 2019Q4

REPORT INFORMATION
  Report Type: Spontaneous
  Country: US (occurrence: US)
  Receive Date: 20191204
  Receipt Date: 20191204
  Transmission Date: 20200122
  Serious: No
  Sender: FDA-Public Use
  Company Number: US-BAYER-2019-219266

PATIENT
  Sex: Female

DRUGS (1)
  1. SKYLA [Suspect]
     Active Substance: LEVONORGESTREL
     Indication: CONTRACEPTION
     Dosage: 14 MCG/24HR, CONT
     Route: 015
     Dates: start: 20191008

REACTIONS (4)
  - Menstruation delayed [Not Recovered/Not Resolved]
  - Vaginal haemorrhage [Recovered/Resolved]
  - Metrorrhagia [None]
  - Menorrhagia [Recovered/Resolved]

NARRATIVE: CASE EVENT DATE: 201910
